FAERS Safety Report 6642350-4 (Version None)
Quarter: 2010Q1

REPORT INFORMATION
  Report Type: 
  Country: None (occurrence: None)
  Receive Date: 20100319
  Receipt Date: 20100316
  Transmission Date: 20100710
  Serious: Yes (Death)
  Sender: FDA-Public Use
  Company Number: FR-SANOFI-AVENTIS-2010SA015441

PATIENT
  Age: 71 Year
  Sex: Female
  Weight: 54 kg

DRUGS (5)
  1. OXALIPLATIN [Suspect]
     Dosage: DOSE:5 MILLIGRAM(S)/MILLILITRE
     Route: 041
     Dates: start: 20090217, end: 20090217
  2. CAMPTOSAR [Suspect]
     Dates: start: 20090217, end: 20090217
  3. CALCIUM FOLINATE [Suspect]
     Route: 042
     Dates: start: 20090217, end: 20090217
  4. FLUOROURACIL [Suspect]
     Route: 040
     Dates: start: 20090217, end: 20090217
  5. FLUOROURACIL [Suspect]
     Route: 042
     Dates: start: 20090217, end: 20090217

REACTIONS (5)
  - CHEST PAIN [None]
  - DIARRHOEA [None]
  - GENERAL PHYSICAL HEALTH DETERIORATION [None]
  - NEUROPATHY PERIPHERAL [None]
  - PYREXIA [None]
